FAERS Safety Report 23030553 (Version 6)
Quarter: 2025Q1

REPORT INFORMATION
  Report Type: Spontaneous
  Country: CA (occurrence: CA)
  Receive Date: 20231005
  Receipt Date: 20250304
  Transmission Date: 20250409
  Serious: Yes (Disabling, Other)
  Sender: CELLTRION
  Company Number: CA-CELLTRION INC.-2023CA017899

PATIENT

DRUGS (25)
  1. YUFLYMA [Suspect]
     Active Substance: ADALIMUMAB-AATY
     Indication: Rheumatoid arthritis
     Dosage: 40 MG, Q2WEEKS
     Route: 058
     Dates: start: 20230823
  2. YUFLYMA [Suspect]
     Active Substance: ADALIMUMAB-AATY
     Dosage: 40 MG, Q2WEEKS
     Route: 058
     Dates: end: 2023
  3. METHOTREXATE [Concomitant]
     Active Substance: METHOTREXATE
     Dosage: 8 TABLETS WEEKLY
  4. METHOTREXATE [Concomitant]
     Active Substance: METHOTREXATE
     Dosage: 1 EVERY 1 WEEKS
  5. FOLIC ACID [Concomitant]
     Active Substance: FOLIC ACID
  6. FOLIC ACID [Concomitant]
     Active Substance: FOLIC ACID
  7. CANDESARTAN [Concomitant]
     Active Substance: CANDESARTAN
  8. HYDRALAZINE [Concomitant]
     Active Substance: HYDRALAZINE HYDROCHLORIDE
  9. LEFLUNOMIDE [Concomitant]
     Active Substance: LEFLUNOMIDE
  10. EZETIMIBE [Concomitant]
     Active Substance: EZETIMIBE
  11. VITAMIN D NOS [Concomitant]
     Active Substance: CHOLECALCIFEROL\ERGOCALCIFEROL
  12. BACLOFEN [Concomitant]
     Active Substance: BACLOFEN
  13. BISOPROLOL [Concomitant]
     Active Substance: BISOPROLOL
  14. GABAPENTIN [Concomitant]
     Active Substance: GABAPENTIN
  15. GABAPENTIN [Concomitant]
     Active Substance: GABAPENTIN
  16. ACETAMINOPHEN [Concomitant]
     Active Substance: ACETAMINOPHEN
  17. ATORVASTATIN [Concomitant]
     Active Substance: ATORVASTATIN
  18. SULFASALAZINE [Concomitant]
     Active Substance: SULFASALAZINE
  19. SULFASALAZINE [Concomitant]
     Active Substance: SULFASALAZINE
  20. LEVOTHYROXINE [Concomitant]
     Active Substance: LEVOTHYROXINE
  21. INSULIN NOS [Concomitant]
     Active Substance: INSULIN NOS
  22. OZEMPIC [Concomitant]
     Active Substance: SEMAGLUTIDE
  23. INSULIN NOS [Concomitant]
     Active Substance: INSULIN NOS
  24. SEMAGLUTIDE [Concomitant]
     Active Substance: SEMAGLUTIDE
  25. SEMAGLUTIDE [Concomitant]
     Active Substance: SEMAGLUTIDE

REACTIONS (16)
  - Neck pain [Not Recovered/Not Resolved]
  - Loss of personal independence in daily activities [Not Recovered/Not Resolved]
  - Abdominal pain upper [Not Recovered/Not Resolved]
  - Injection site discolouration [Not Recovered/Not Resolved]
  - Oral pain [Not Recovered/Not Resolved]
  - Dysstasia [Not Recovered/Not Resolved]
  - Malaise [Not Recovered/Not Resolved]
  - Insomnia [Not Recovered/Not Resolved]
  - Arthralgia [Not Recovered/Not Resolved]
  - Arthralgia [Not Recovered/Not Resolved]
  - Arthralgia [Not Recovered/Not Resolved]
  - Pain in extremity [Not Recovered/Not Resolved]
  - Pain in extremity [Not Recovered/Not Resolved]
  - Drug ineffective [Not Recovered/Not Resolved]
  - Feeling cold [Not Recovered/Not Resolved]
  - Musculoskeletal stiffness [Not Recovered/Not Resolved]

NARRATIVE: CASE EVENT DATE: 20230823
